FAERS Safety Report 20351043 (Version 1)
Quarter: 2022Q1

REPORT INFORMATION
  Report Type: Report from Study
  Country: CA (occurrence: CA)
  Receive Date: 20220119
  Receipt Date: 20220119
  Transmission Date: 20220423
  Serious: Yes (Other)
  Sender: FDA-Public Use
  Company Number: CA-MYLANLABS-2022M1002896

PATIENT
  Age: 63 Year
  Sex: Male

DRUGS (1)
  1. HULIO [Suspect]
     Active Substance: ADALIMUMAB-FKJP
     Indication: Ankylosing spondylitis
     Dosage: UNK UNK, Q2W (2 WEEKS)

REACTIONS (3)
  - Crohn^s disease [Unknown]
  - Back pain [Unknown]
  - Diarrhoea [Unknown]
